FAERS Safety Report 9402352 (Version 1)
Quarter: 2013Q3

REPORT INFORMATION
  Report Type: Spontaneous
  Country: CN (occurrence: CN)
  Receive Date: 20130716
  Receipt Date: 20130716
  Transmission Date: 20140515
  Serious: Yes (Other)
  Sender: FDA-Public Use
  Company Number: CN-BAXTER-2013BAX026372

PATIENT
  Sex: Female
  Weight: 55 kg

DRUGS (7)
  1. 0.9% SODIUM CHLORIDE INJECTION [Suspect]
     Indication: MEDICATION DILUTION
     Route: 041
     Dates: start: 20120211, end: 20120211
  2. 0.9% SODIUM CHLORIDE INJECTION [Suspect]
     Route: 041
     Dates: start: 20120210, end: 20120211
  3. ENDOXAN 1G [Suspect]
     Indication: CHEMOTHERAPY
     Route: 041
     Dates: start: 20120211, end: 20120211
  4. DOCETAXEL [Suspect]
     Indication: CHEMOTHERAPY
     Route: 041
     Dates: start: 20120211, end: 20120211
  5. EPIRUBICIN [Suspect]
     Indication: CHEMOTHERAPY
     Route: 041
     Dates: start: 20120211, end: 20120211
  6. GLUCOSE [Concomitant]
     Indication: MEDICATION DILUTION
     Route: 041
     Dates: start: 20120210, end: 20120210
  7. GLUCOSE [Concomitant]
     Route: 041
     Dates: start: 20120211, end: 20120211

REACTIONS (1)
  - White blood cell count decreased [Recovered/Resolved]
